FAERS Safety Report 25930291 (Version 3)
Quarter: 2025Q4

REPORT INFORMATION
  Report Type: Report from Study
  Country: US (occurrence: US)
  Receive Date: 20251016
  Receipt Date: 20251108
  Transmission Date: 20260118
  Serious: No
  Sender: UNITED THERAPEUTICS
  Company Number: US-UNITED THERAPEUTICS-UNT-2025-033731

PATIENT
  Sex: Female

DRUGS (10)
  1. TREPROSTINIL [Suspect]
     Active Substance: TREPROSTINIL
     Indication: Pulmonary arterial hypertension
     Dosage: 1.75 MG (1 TABLET OF 1 MG AND 3 TABLETS OF 0.25 MG, EACH), TID
     Dates: start: 2025, end: 202509
  2. TREPROSTINIL [Suspect]
     Active Substance: TREPROSTINIL
     Dosage: UNK
  3. ORENITRAM [Suspect]
     Active Substance: TREPROSTINIL
     Indication: Pulmonary arterial hypertension
     Dosage: UNK
  4. ORENITRAM [Suspect]
     Active Substance: TREPROSTINIL
     Indication: Pulmonary arterial hypertension
     Dosage: UNK
  5. REMODULIN [Suspect]
     Active Substance: TREPROSTINIL
     Indication: Pulmonary arterial hypertension
     Dosage: 0.0035 ?G/KG, CONTINUING
     Route: 041
  6. REMODULIN [Suspect]
     Active Substance: TREPROSTINIL
     Dosage: 0.0195 ?G/KG, CONTINUING
     Route: 041
  7. REMODULIN [Suspect]
     Active Substance: TREPROSTINIL
     Dosage: 0.0255 ?G/KG, CONTINUING
     Route: 041
  8. REMODULIN [Suspect]
     Active Substance: TREPROSTINIL
     Dosage: UNK, CONTINUING
     Route: 041
  9. REMODULIN [Suspect]
     Active Substance: TREPROSTINIL
     Indication: Pulmonary arterial hypertension
     Dosage: 0.03078 ?G/KG, CONTINUING
  10. REMODULIN [Suspect]
     Active Substance: TREPROSTINIL
     Dosage: UNK, CONTINUING

REACTIONS (5)
  - Diarrhoea [Unknown]
  - Infusion site pain [Recovering/Resolving]
  - Hypertension [Unknown]
  - Infusion site erythema [Unknown]
  - Infusion site swelling [Unknown]

NARRATIVE: CASE EVENT DATE: 20250101
